FAERS Safety Report 7406846-X (Version None)
Quarter: 2011Q2

REPORT INFORMATION
  Report Type: 
  Country: None (occurrence: None)
  Receive Date: 20110404
  Receipt Date: 20110319
  Transmission Date: 20111010
  Serious: Yes (Hospitalization, Other)
  Sender: FDA-Public Use
  Company Number: OTC-2011-00005

PATIENT
  Age: 48 Year
  Sex: Female
  Weight: 68.0396 kg

DRUGS (1)
  1. NEUTROGENA OIL-FREE ACNE WASH [Suspect]
     Indication: ACNE
     Dosage: DIME SIZE, 1X ONLY, TOPICAL
     Route: 061
     Dates: start: 20110304, end: 20110305

REACTIONS (7)
  - EYE SWELLING [None]
  - URTICARIA [None]
  - ERYTHEMA [None]
  - SWELLING FACE [None]
  - LIP SWELLING [None]
  - PRURITUS [None]
  - DRUG INEFFECTIVE [None]
